FAERS Safety Report 8386472-9 (Version None)
Quarter: 2012Q2

REPORT INFORMATION
  Report Type: 
  Country: None (occurrence: None)
  Receive Date: 20120525
  Receipt Date: 20120514
  Transmission Date: 20120825
  Serious: Yes (Death, Hospitalization, Other)
  Sender: FDA-Public Use
  Company Number: US-MYLANLABS-2009AC000136

PATIENT
  Sex: Female
  Weight: 52.16 kg

DRUGS (23)
  1. METOPROLOL TARTRATE [Concomitant]
  2. GLYCOL [Concomitant]
     Route: 031
  3. TAMOXIFEN CITRATE [Concomitant]
  4. PLENDIL [Concomitant]
  5. ANUSOL HC [Concomitant]
  6. TYLENOL [Concomitant]
  7. CIPROFLOXACIN [Concomitant]
  8. AMIODARONE HCL [Concomitant]
  9. FOSAMAX [Concomitant]
  10. PILOCARPINE [Concomitant]
  11. COSOPT [Concomitant]
  12. TRIAMCINOLONE ACETONIDE [Concomitant]
  13. ESTRACE [Concomitant]
  14. CALCIUM CARBONATE [Concomitant]
  15. MIRALAX /00754501/ [Concomitant]
  16. ALDACTONE [Concomitant]
  17. THYROID TAB [Concomitant]
  18. DIGOXIN [Suspect]
     Indication: ATRIAL FIBRILLATION
     Route: 048
     Dates: start: 19960621, end: 20070915
  19. FUROSEMIDE [Concomitant]
  20. THYROID [Concomitant]
  21. ASPIRIN [Concomitant]
  22. LUMIGAN [Concomitant]
  23. METAMUCIL-2 [Concomitant]

REACTIONS (53)
  - ATRIAL FIBRILLATION [None]
  - PERICARDIAL EFFUSION [None]
  - AORTIC ARTERIOSCLEROSIS [None]
  - BACK PAIN [None]
  - CHEST X-RAY ABNORMAL [None]
  - DERMATITIS ATOPIC [None]
  - ANHEDONIA [None]
  - HYPERTENSION [None]
  - PULMONARY CONGESTION [None]
  - TACHYCARDIA [None]
  - FALL [None]
  - OEDEMA PERIPHERAL [None]
  - UTERINE ENLARGEMENT [None]
  - HAEMOGLOBIN DECREASED [None]
  - CEREBRAL ATROPHY [None]
  - DISEASE RECURRENCE [None]
  - DIVERTICULUM [None]
  - ECHOCARDIOGRAM ABNORMAL [None]
  - CORONARY ARTERY DISEASE [None]
  - URINARY TRACT INFECTION [None]
  - ANAEMIA [None]
  - BREATH SOUNDS ABNORMAL [None]
  - CONFUSIONAL STATE [None]
  - HYPERTENSIVE NEPHROPATHY [None]
  - SPINAL OSTEOARTHRITIS [None]
  - INJURY [None]
  - EMOTIONAL DISTRESS [None]
  - PNEUMONIA [None]
  - ARRHYTHMIA [None]
  - GASTROINTESTINAL HAEMORRHAGE [None]
  - SYNCOPE [None]
  - CARDIOMEGALY [None]
  - DYSPNOEA [None]
  - ILL-DEFINED DISORDER [None]
  - CARDIAC FAILURE CONGESTIVE [None]
  - PLEURAL EFFUSION [None]
  - CHRONIC OBSTRUCTIVE PULMONARY DISEASE [None]
  - LUNG INFILTRATION [None]
  - PYREXIA [None]
  - WEIGHT DECREASED [None]
  - ECONOMIC PROBLEM [None]
  - UTERINE LEIOMYOMA [None]
  - CEREBRAL MICROANGIOPATHY [None]
  - CONSTIPATION [None]
  - FATIGUE [None]
  - DEATH [None]
  - PAIN [None]
  - TRANSFUSION [None]
  - CARDIAC VALVE DISEASE [None]
  - ASTHENIA [None]
  - CARDIAC MURMUR [None]
  - ECZEMA [None]
  - MALAISE [None]
